FAERS Safety Report 13021414 (Version 1)
Quarter: 2016Q4

REPORT INFORMATION
  Report Type: Report from Study
  Country: SE (occurrence: SE)
  Receive Date: 20161213
  Receipt Date: 20161213
  Transmission Date: 20170207
  Serious: Yes (Death, Hospitalization, Other)
  Sender: FDA-Public Use
  Company Number: SE-ROCHE-1864750

PATIENT

DRUGS (3)
  1. PEG-INTERFERON ALFA 2A [Suspect]
     Active Substance: PEGINTERFERON ALFA-2A
     Indication: HEPATITIS C
     Route: 065
  2. PEGINTERFERON ALFA-2B [Suspect]
     Active Substance: PEGINTERFERON ALFA-2B
     Indication: HEPATITIS C
     Route: 065
  3. RIBAVIRIN. [Suspect]
     Active Substance: RIBAVIRIN
     Indication: HEPATITIS C
     Route: 065

REACTIONS (17)
  - Decreased appetite [Unknown]
  - Drug intolerance [Unknown]
  - Cardiac tamponade [Fatal]
  - Pneumonia [Unknown]
  - Thrombocytopenia [Unknown]
  - Anaemia [Unknown]
  - Arteriosclerosis coronary artery [Fatal]
  - Weight decreased [Unknown]
  - Dry skin [Unknown]
  - Myocardial infarction [Fatal]
  - Respiratory tract infection [Unknown]
  - Mood altered [Unknown]
  - Pruritus [Unknown]
  - Nausea [Unknown]
  - Neutropenia [Unknown]
  - Infection [Unknown]
  - Insomnia [Unknown]
